FAERS Safety Report 12636790 (Version 1)
Quarter: 2016Q3

REPORT INFORMATION
  Report Type: Spontaneous
  Country: US (occurrence: US)
  Receive Date: 20160809
  Receipt Date: 20160809
  Transmission Date: 20161109
  Serious: Yes (Hospitalization, Other)
  Sender: FDA-Public Use
  Company Number: US-ELI_LILLY_AND_COMPANY-US201608005140

PATIENT
  Age: 41 Year
  Sex: Male

DRUGS (2)
  1. GLEEVEC [Concomitant]
     Active Substance: IMATINIB MESYLATE
     Indication: BLOOD TESTOSTERONE DECREASED
  2. AXIRON [Suspect]
     Active Substance: TESTOSTERONE
     Indication: BLOOD TESTOSTERONE DECREASED
     Dosage: UNK, UNKNOWN
     Route: 065
     Dates: start: 2012, end: 2014

REACTIONS (3)
  - Irritability [Unknown]
  - Gastrointestinal stromal tumour [Unknown]
  - Aggression [Unknown]

NARRATIVE: CASE EVENT DATE: 2013
